FAERS Safety Report 21375004 (Version 1)
Quarter: 2022Q3

REPORT INFORMATION
  Report Type: Spontaneous
  Country: IT (occurrence: IT)
  Receive Date: 20220926
  Receipt Date: 20220926
  Transmission Date: 20221026
  Serious: Yes (Hospitalization, Other)
  Sender: FDA-Public Use
  Company Number: IT-SAMSUNG BIOEPIS-SB-2022-23347

PATIENT
  Sex: Male

DRUGS (8)
  1. TRASTUZUMAB [Suspect]
     Active Substance: TRASTUZUMAB
     Indication: Extramammary Paget^s disease
     Dosage: LOADING DOSE
     Route: 042
     Dates: start: 201601
  2. TRASTUZUMAB [Suspect]
     Active Substance: TRASTUZUMAB
     Dosage: MAINTENANCE DOSE
     Route: 042
     Dates: end: 201910
  3. VINORELBINE [Suspect]
     Active Substance: VINORELBINE TARTRATE
     Indication: Extramammary Paget^s disease
     Dosage: THIRD-LINE METRONOMIC (AS GIVEN ON MONDAY, WEDNESDAY, AND FRIDAY EVERY WEEK)
     Route: 048
     Dates: start: 201808
  4. VINORELBINE [Suspect]
     Active Substance: VINORELBINE TARTRATE
     Dosage: REDUCED DOSE, METRONOMIC (ON MONDAY, WEDNESDAY, AND FRIDAY EVERY WEEK)
     Route: 048
     Dates: start: 201901, end: 201905
  5. BICALUTAMIDE [Suspect]
     Active Substance: BICALUTAMIDE
     Indication: Extramammary Paget^s disease
     Dosage: FOURTH-LINE TREATMENT
     Route: 048
     Dates: start: 201906, end: 201908
  6. LEUPROLIDE ACETATE [Suspect]
     Active Substance: LEUPROLIDE ACETATE
     Indication: Extramammary Paget^s disease
     Dosage: FOURTH-LINE TREATMENT
     Route: 030
     Dates: start: 201906, end: 201908
  7. GEMCITABINE [Suspect]
     Active Substance: GEMCITABINE
     Indication: Extramammary Paget^s disease
     Dosage: FIFTH-LINE TREATMENT, DAY 1
     Route: 065
     Dates: start: 201908
  8. GEMCITABINE [Suspect]
     Active Substance: GEMCITABINE
     Dosage: FIFTH-LINE TREATMENT, DAY 8
     Route: 065
     Dates: end: 201910

REACTIONS (9)
  - Febrile neutropenia [Unknown]
  - Extramammary Paget^s disease [Unknown]
  - Anaemia [Unknown]
  - Drug intolerance [Unknown]
  - Asthenia [Unknown]
  - Mobility decreased [Unknown]
  - Gait disturbance [Unknown]
  - Drug ineffective for unapproved indication [Unknown]
  - Off label use [Unknown]

NARRATIVE: CASE EVENT DATE: 20180801
